FAERS Safety Report 6061661-7 (Version None)
Quarter: 2009Q1

REPORT INFORMATION
  Report Type: 
  Country: None (occurrence: None)
  Receive Date: 20090202
  Receipt Date: 20090121
  Transmission Date: 20090719
  Serious: Yes (Hospitalization)
  Sender: FDA-Public Use
  Company Number: B0555311A

PATIENT
  Age: 46 Year
  Sex: Male

DRUGS (11)
  1. FORTUM [Suspect]
     Indication: DRUG USE FOR UNKNOWN INDICATION
     Dates: start: 20081205, end: 20081216
  2. ZOVIRAX [Suspect]
     Indication: DRUG USE FOR UNKNOWN INDICATION
     Route: 048
     Dates: start: 20081211, end: 20081216
  3. TRUVADA [Suspect]
     Indication: ANTIRETROVIRAL THERAPY
     Dosage: 1UNIT PER DAY
     Route: 048
     Dates: start: 20081211, end: 20081216
  4. RALTEGRAVIR [Suspect]
     Indication: ANTIRETROVIRAL THERAPY
     Dosage: 1UNIT TWICE PER DAY
     Route: 048
     Dates: start: 20081211, end: 20081216
  5. PREZISTA [Suspect]
     Indication: ANTIRETROVIRAL THERAPY
     Dosage: 2UNIT TWICE PER DAY
     Route: 048
     Dates: start: 20081211, end: 20081216
  6. NORVIR [Suspect]
     Indication: ANTIRETROVIRAL THERAPY
     Dosage: 1UNIT TWICE PER DAY
     Route: 048
     Dates: start: 20081211, end: 20081216
  7. PENTACARINAT [Concomitant]
     Route: 055
     Dates: start: 20081014
  8. VFEND [Concomitant]
     Indication: ASPERGILLOSIS
     Route: 048
     Dates: start: 20081215
  9. WELLVONE [Concomitant]
     Route: 065
     Dates: start: 20081219
  10. FUNGIZONE [Concomitant]
     Route: 065
  11. ARIXTRA [Concomitant]
     Route: 065

REACTIONS (4)
  - ASPERGILLOSIS [None]
  - GENERAL PHYSICAL HEALTH DETERIORATION [None]
  - PRURITUS [None]
  - RASH GENERALISED [None]
